FAERS Safety Report 13946446 (Version 1)
Quarter: 2017Q3

REPORT INFORMATION
  Report Type: Spontaneous
  Country: KR (occurrence: KR)
  Receive Date: 20170907
  Receipt Date: 20170907
  Transmission Date: 20171128
  Serious: Yes (Other)
  Sender: FDA-Public Use
  Company Number: KR-LANNETT COMPANY, INC.-KR-2017LAN001027

PATIENT
  Age: 55 Year
  Sex: Male

DRUGS (5)
  1. LEVODOPA BENSERAZIDE [Suspect]
     Active Substance: BENSERAZIDE\LEVODOPA
     Indication: LOCKED-IN SYNDROME
     Dosage: STARTED AT 100/25 MG AND INCREASED TO 450/112.5 MG/DAY OVER 5 WEEKS
     Route: 065
  2. METHYLPHENIDATE HYDROCHLORIDE. [Suspect]
     Active Substance: METHYLPHENIDATE HYDROCHLORIDE
     Indication: LOCKED-IN SYNDROME
     Dosage: STARTED AT 10MG/D AND GRADUALLY INCREASED TO 40 MG/D OVER 5 WEEKS
     Route: 065
  3. ATOMOXETINE. [Suspect]
     Active Substance: ATOMOXETINE HYDROCHLORIDE
     Dosage: 40 MG, QD
     Route: 065
  4. METHYLPHENIDATE HYDROCHLORIDE. [Suspect]
     Active Substance: METHYLPHENIDATE HYDROCHLORIDE
     Dosage: 40 MG, QD
  5. ATOMOXETINE. [Suspect]
     Active Substance: ATOMOXETINE HYDROCHLORIDE
     Indication: LOCKED-IN SYNDROME
     Dosage: STARTED AT 10 MG/D AND INCREASED IN INCREMENTS TO 40 MG/D OVER 5 WEEK-PERIOD
     Route: 065

REACTIONS (1)
  - Serotonin syndrome [Recovered/Resolved]
